FAERS Safety Report 11563970 (Version 2)
Quarter: 2015Q4

REPORT INFORMATION
  Report Type: Spontaneous
  Country: US (occurrence: US)
  Receive Date: 20150928
  Receipt Date: 20151005
  Transmission Date: 20160304
  Serious: Yes (Hospitalization, Other)
  Sender: FDA-Public Use
  Company Number: US-FERRINGPH-2015FE03198

PATIENT

DRUGS (5)
  1. FIRMAGON [Suspect]
     Active Substance: DEGARELIX ACETATE
     Indication: PROSTATIC SPECIFIC ANTIGEN INCREASED
     Dosage: 2 INJECTIONS, POSSIBLY 240MG RECEIVED
     Dates: start: 2015, end: 2015
  2. MYRBETRIQ [Concomitant]
     Active Substance: MIRABEGRON
  3. CENTRUM [Concomitant]
     Active Substance: VITAMINS
  4. FIRMAGON [Suspect]
     Active Substance: DEGARELIX ACETATE
     Indication: BLOOD TESTOSTERONE INCREASED
  5. ASPIRIN. [Concomitant]
     Active Substance: ASPIRIN

REACTIONS (13)
  - Fall [Not Recovered/Not Resolved]
  - Pollakiuria [Not Recovered/Not Resolved]
  - Suicidal ideation [Unknown]
  - Asthenia [Not Recovered/Not Resolved]
  - Feeling abnormal [Not Recovered/Not Resolved]
  - Dehydration [Not Recovered/Not Resolved]
  - Dizziness [Not Recovered/Not Resolved]
  - Blood testosterone increased [Unknown]
  - Blindness [Not Recovered/Not Resolved]
  - Wheezing [Unknown]
  - Injection site pain [Recovered/Resolved]
  - Quality of life decreased [Not Recovered/Not Resolved]
  - Product use issue [Unknown]

NARRATIVE: CASE EVENT DATE: 2015
